FAERS Safety Report 9457606 (Version 1)
Quarter: 2013Q3

REPORT INFORMATION
  Report Type: Spontaneous
  Country: US (occurrence: US)
  Receive Date: 20130814
  Receipt Date: 20130814
  Transmission Date: 20140515
  Serious: No
  Sender: FDA-Public Use
  Company Number: US-PFIZER INC-2013233394

PATIENT
  Age: 70 Year
  Sex: Female

DRUGS (9)
  1. INLYTA [Suspect]
     Indication: RENAL CANCER
     Dosage: 5 MG, UNK
     Dates: start: 20130717
  2. COUMADIN [Concomitant]
     Dosage: UNK
  3. LASIX [Concomitant]
     Dosage: UNK
  4. METOPROLOL TARTRATE [Concomitant]
     Dosage: UNK
  5. OXYCODONE HYDROCHLORIDE [Concomitant]
     Dosage: UNK
  6. OXYCONTIN [Concomitant]
     Dosage: UNK
  7. POTASSIUM CHLORIDE [Concomitant]
     Dosage: UNK
  8. PROCHLORPERAZINE MALEATE [Concomitant]
     Dosage: UNK
  9. WARFARIN SODIUM [Concomitant]
     Dosage: UNK

REACTIONS (3)
  - Pruritus [Unknown]
  - Rash [Unknown]
  - Fatigue [Unknown]
